FAERS Safety Report 10743728 (Version 1)
Quarter: 2015Q1

REPORT INFORMATION
  Report Type: Spontaneous
  Country: FR (occurrence: FR)
  Receive Date: 20150128
  Receipt Date: 20150128
  Transmission Date: 20150721
  Serious: Yes (Death, Life-Threatening)
  Sender: FDA-Public Use
  Company Number: FR-ACCORD-028251

PATIENT
  Age: 71 Year
  Sex: Female

DRUGS (4)
  1. NOLVADEX [Concomitant]
     Active Substance: TAMOXIFEN CITRATE
     Indication: HORMONE THERAPY
     Dates: end: 2010
  2. DOCETAXEL ACCORD [Suspect]
     Active Substance: DOCETAXEL
     Indication: BREAST CANCER
     Route: 042
     Dates: start: 19961219
  3. CYCLOPHOSPHAMIDE/CYCLOPHOSPHAMIDE MONOHYDRATE [Suspect]
     Active Substance: CYCLOPHOSPHAMIDE
     Indication: BREAST CANCER
     Dosage: FOR ONE CYCLE.
     Route: 042
     Dates: start: 19961219
  4. DOXORUBICIN [Suspect]
     Active Substance: DOXORUBICIN
     Indication: BREAST CANCER
     Route: 042
     Dates: start: 19961219

REACTIONS (4)
  - Myelodysplastic syndrome [Unknown]
  - Cytogenetic abnormality [Unknown]
  - Refractory anaemia with an excess of blasts [Fatal]
  - 5q minus syndrome [None]

NARRATIVE: CASE EVENT DATE: 20120530
